FAERS Safety Report 8854356 (Version 1)
Quarter: 2012Q4

REPORT INFORMATION
  Report Type: 
  Country: US (occurrence: US)
  Receive Date: 20121023
  Receipt Date: 20121023
  Transmission Date: 20130627
  Serious: Yes (Death)
  Sender: FDA-Public Use
  Company Number: US-ROCHE-1133087

PATIENT
  Sex: Female

DRUGS (3)
  1. RAPTIVA [Suspect]
     Indication: PSORIASIS
     Route: 065
  2. METHOTREXATE [Concomitant]
  3. CYCLOFOSFAMIDE [Concomitant]

REACTIONS (6)
  - Death [Fatal]
  - Pruritus [Unknown]
  - Pain [Unknown]
  - Depression [Unknown]
  - Skin exfoliation [Unknown]
  - Drug ineffective [Unknown]
